FAERS Safety Report 6883864-1 (Version None)
Quarter: 2010Q3

REPORT INFORMATION
  Report Type: 
  Country: None (occurrence: None)
  Receive Date: 20100729
  Receipt Date: 20100611
  Transmission Date: 20110219
  Serious: Yes (Hospitalization)
  Sender: FDA-Public Use
  Company Number: FR-JNJCH-2010017399

PATIENT
  Sex: Female

DRUGS (11)
  1. ZYRTEC [Suspect]
     Indication: HYPERSENSITIVITY
     Dosage: TEXT:10 MG BID
     Route: 048
     Dates: start: 20100304, end: 20100319
  2. ATARAX [Suspect]
     Indication: PRURITUS
     Dosage: TEXT:25 MG
     Route: 048
     Dates: start: 20100304, end: 20100319
  3. ATARAX [Suspect]
     Dosage: TEXT:UNKNOWN
     Route: 048
     Dates: start: 20100331, end: 20100401
  4. ROCEPHIN [Suspect]
     Indication: BRONCHITIS
     Dosage: TEXT:1 G
     Route: 042
     Dates: start: 20100304, end: 20100308
  5. OFLOXACIN [Suspect]
     Indication: BRONCHITIS
     Dosage: TEXT:200 MG
     Route: 048
     Dates: start: 20100302, end: 20100311
  6. CALCIPARINE [Suspect]
     Indication: PROPHYLAXIS
     Dosage: TEXT:5000 IU BID
     Route: 042
     Dates: start: 20100302, end: 20100313
  7. ZANIDIP [Concomitant]
     Indication: PRODUCT USED FOR UNKNOWN INDICATION
     Dosage: TEXT:UNKNOWN
     Route: 065
  8. SOTALOL HCL [Concomitant]
     Indication: PRODUCT USED FOR UNKNOWN INDICATION
     Dosage: TEXT:UNKNOWN
     Route: 065
  9. COAPROVEL [Concomitant]
     Indication: PRODUCT USED FOR UNKNOWN INDICATION
     Dosage: TEXT:UNKNOWN
     Route: 065
  10. METFORMIN HCL [Concomitant]
     Indication: PRODUCT USED FOR UNKNOWN INDICATION
     Dosage: TEXT:UNKNOWN
     Route: 065
  11. ROSUVASTATIN [Concomitant]
     Indication: PRODUCT USED FOR UNKNOWN INDICATION
     Dosage: TEXT:UNKNOWN
     Route: 065

REACTIONS (2)
  - EOSINOPHILIA [None]
  - RASH MORBILLIFORM [None]
